FAERS Safety Report 4550597-6 (Version None)
Quarter: 2004Q4

REPORT INFORMATION
  Report Type: 
  Country: None (occurrence: None)
  Receive Date: 20041227
  Receipt Date: 20040920
  Transmission Date: 20050328
  Serious: No
  Sender: FDA-Public Use
  Company Number: 04P-163-0273977-00

PATIENT
  Age: 50 Year
  Sex: Female
  Weight: 100 kg

DRUGS (9)
  1. HUMIRA [Suspect]
     Indication: PSORIATIC ARTHROPATHY
     Dosage: SEE IMAGE
     Route: 058
     Dates: start: 20040601, end: 20040903
  2. HUMIRA [Suspect]
     Indication: PSORIATIC ARTHROPATHY
     Dosage: SEE IMAGE
     Route: 058
     Dates: start: 20040903
  3. QUINAPRIL HYDROCHLORIDE [Concomitant]
  4. GLIBENCLAMIDE [Concomitant]
  5. METFORMIN HCL [Concomitant]
  6. CALCIPOTRIOL [Concomitant]
  7. CELECOXIB [Concomitant]
  8. HYDROCODONE [Concomitant]
  9. DURAGESIC [Concomitant]

REACTIONS (2)
  - DRUG INEFFECTIVE [None]
  - INJECTION SITE PAIN [None]
